FAERS Safety Report 8285948-2 (Version None)
Quarter: 2012Q2

REPORT INFORMATION
  Report Type: 
  Country: None (occurrence: None)
  Receive Date: 20120415
  Receipt Date: 20120403
  Transmission Date: 20120825
  Serious: Yes (Hospitalization, Other)
  Sender: FDA-Public Use
  Company Number: US-MYLANLABS-2012S1007577

PATIENT
  Sex: Male
  Weight: 73.48 kg

DRUGS (39)
  1. DIGOXIN [Suspect]
     Indication: PRODUCT USED FOR UNKNOWN INDICATION
     Route: 048
     Dates: start: 20061121, end: 20091216
  2. ADVAIR DISKUS 100/50 [Concomitant]
  3. MOBIC [Concomitant]
  4. MUCINEX [Concomitant]
  5. PRAVACHOL [Concomitant]
  6. SOTALOL HCL [Concomitant]
  7. ANTIVERT [Concomitant]
  8. CLINDAMYCIN [Concomitant]
     Route: 042
  9. GLIPIZIDE [Concomitant]
  10. LASIX [Concomitant]
  11. VICODIN [Concomitant]
     Dosage: 10MG/660MG
  12. ZITHROMAX [Concomitant]
  13. GLUCOPHAGE [Concomitant]
  14. NORCO [Concomitant]
     Dosage: 10/325MG 2 TABLETS Q4 TO 6 H
  15. REGLAN [Concomitant]
  16. RIFAMPIN [Concomitant]
  17. ALTACE [Concomitant]
  18. IMDUR [Concomitant]
  19. PROTONIX [Concomitant]
  20. VANCOMYCIN [Concomitant]
     Route: 042
  21. LISINOPRIL [Concomitant]
  22. BACTRIM DS [Concomitant]
  23. CEFZIL [Concomitant]
  24. ORASONE [Concomitant]
  25. PLAVIX [Concomitant]
  26. PREDNISONE [Concomitant]
  27. XANAX [Concomitant]
  28. ASPIRIN [Concomitant]
  29. ATENOLOL [Concomitant]
  30. POTASSIUM CHLORIDE [Concomitant]
  31. NIACIN [Concomitant]
  32. TRAZODONE HCL [Concomitant]
  33. ALBUTEROL [Concomitant]
  34. LIPITOR [Concomitant]
  35. NORVASC [Concomitant]
  36. NOVOLIN N [Concomitant]
     Dosage: AS DIRECTED
  37. TOPROL-XL [Concomitant]
  38. WELLBUTRIN [Concomitant]
  39. COUMADIN [Concomitant]
     Dosage: 3.75MG MWF, 2.5MG T, TH, SAT, SUN

REACTIONS (60)
  - VENTRICULAR TACHYCARDIA [None]
  - CARDIOMEGALY [None]
  - CHEST X-RAY ABNORMAL [None]
  - CONSTIPATION [None]
  - LUNG INFILTRATION [None]
  - PAIN IN EXTREMITY [None]
  - PURULENT DISCHARGE [None]
  - AREFLEXIA [None]
  - BACTERIAL INFECTION [None]
  - OESOPHAGEAL DISORDER [None]
  - PARAESTHESIA [None]
  - CHEST PAIN [None]
  - GENERALISED OEDEMA [None]
  - ASTHENIA [None]
  - BRONCHIAL OEDEMA [None]
  - CHRONIC OBSTRUCTIVE PULMONARY DISEASE [None]
  - ELECTROCARDIOGRAM ABNORMAL [None]
  - INFLAMMATION [None]
  - JOINT DISLOCATION [None]
  - DYSPNOEA [None]
  - ASCITES [None]
  - PLEURAL EFFUSION [None]
  - ABDOMINAL TENDERNESS [None]
  - COMPUTERISED TOMOGRAM ABNORMAL [None]
  - ECHOCARDIOGRAM ABNORMAL [None]
  - INSOMNIA [None]
  - LABORATORY TEST ABNORMAL [None]
  - SOFT TISSUE NECROSIS [None]
  - STAPHYLOCOCCAL INFECTION [None]
  - URINARY TRACT INFECTION [None]
  - VOMITING [None]
  - ANAEMIA [None]
  - EMPHYSEMA [None]
  - HYPOKALAEMIA [None]
  - ARTERIOSCLEROSIS [None]
  - CELLULITIS [None]
  - DIZZINESS [None]
  - FATIGUE [None]
  - FURUNCLE [None]
  - LUNG NEOPLASM [None]
  - NAUSEA [None]
  - OEDEMA PERIPHERAL [None]
  - PNEUMONIA [None]
  - VENTRICULAR EXTRASYSTOLES [None]
  - CARDIAC FAILURE CONGESTIVE [None]
  - ATELECTASIS [None]
  - HAEMOPTYSIS [None]
  - PULMONARY OEDEMA [None]
  - ABDOMINAL PAIN [None]
  - ABSCESS [None]
  - COUGH [None]
  - DEPRESSION [None]
  - HAND FRACTURE [None]
  - ATRIAL FIBRILLATION [None]
  - ANXIETY [None]
  - AORTIC ANEURYSM REPAIR [None]
  - CHEST DISCOMFORT [None]
  - CONDITION AGGRAVATED [None]
  - TREATMENT NONCOMPLIANCE [None]
  - DYSPNOEA EXERTIONAL [None]
